FAERS Safety Report 15098115 (Version 2)
Quarter: 2018Q3

REPORT INFORMATION
  Report Type: Spontaneous
  Country: US (occurrence: US)
  Receive Date: 20180702
  Receipt Date: 20180920
  Transmission Date: 20181010
  Serious: No
  Sender: FDA-Public Use
  Company Number: US-IGSA-SR10005522

PATIENT
  Age: 8 Year
  Sex: Female

DRUGS (2)
  1. GAMUNEX?C [Suspect]
     Active Substance: HUMAN IMMUNOGLOBULIN G
     Indication: HYPOGAMMAGLOBULINAEMIA
     Dosage: 5 G, Q.WK.
     Route: 058
  2. HUMAN GROWTH HORMONE, RECOMBINANT [Concomitant]
     Active Substance: SOMATROPIN

REACTIONS (3)
  - Infusion site bruising [Recovered/Resolved]
  - Malabsorption from administration site [Recovered/Resolved]
  - Infusion site haemorrhage [Recovered/Resolved]
